FAERS Safety Report 25732741 (Version 2)
Quarter: 2025Q3

REPORT INFORMATION
  Report Type: Spontaneous
  Country: KR (occurrence: KR)
  Receive Date: 20250827
  Receipt Date: 20250829
  Transmission Date: 20251021
  Serious: Yes (Death, Life-Threatening, Hospitalization, Other)
  Sender: BEIGENE
  Company Number: KR-PFIZER INC-202500071927

PATIENT
  Age: 66 Year

DRUGS (26)
  1. BRUKINSA [Suspect]
     Active Substance: ZANUBRUTINIB
     Indication: Mantle cell lymphoma
  2. NEULASTA [Suspect]
     Active Substance: PEGFILGRASTIM
     Indication: Mantle cell lymphoma
  3. TRUXIMA [Suspect]
     Active Substance: RITUXIMAB-ABBS
     Indication: Mantle cell lymphoma
  4. BENDAMUSTINE HYDROCHLORIDE MONOHYDRATE [Suspect]
     Active Substance: BENDAMUSTINE HYDROCHLORIDE MONOHYDRATE
     Indication: Mantle cell lymphoma
  5. CYTARABINE [Suspect]
     Active Substance: CYTARABINE
     Indication: Mantle cell lymphoma
  6. MUCOMYST [Concomitant]
     Active Substance: ACETYLCYSTEINE
  7. MEROPENEM [Concomitant]
     Active Substance: MEROPENEM
  8. DIFLUCAN [Concomitant]
     Active Substance: FLUCONAZOLE
  9. ETOMIDATE [Concomitant]
     Active Substance: ETOMIDATE
  10. LASIX [Concomitant]
     Active Substance: FUROSEMIDE
  11. DEXAMETHASONE [Concomitant]
     Active Substance: DEXAMETHASONE
  12. EPINEPHRINE [Concomitant]
     Active Substance: EPINEPHRINE
  13. GASTER [Concomitant]
     Active Substance: FAMOTIDINE
  14. CELECOXIB [Concomitant]
     Active Substance: CELECOXIB
  15. REBAMIPIDE [Concomitant]
     Active Substance: REBAMIPIDE
  16. JANUVIA [Concomitant]
     Active Substance: SITAGLIPTIN PHOSPHATE
  17. XYZAL [Concomitant]
     Active Substance: LEVOCETIRIZINE DIHYDROCHLORIDE
  18. LENOGRASTIM [Concomitant]
     Active Substance: LENOGRASTIM
  19. HEPARIN [Concomitant]
     Active Substance: HEPARIN SODIUM
  20. LEVOFLOXACIN [Concomitant]
     Active Substance: LEVOFLOXACIN
  21. TEGOPRAZAN [Concomitant]
     Active Substance: TEGOPRAZAN
  22. HYALURONATE SODIUM [Concomitant]
     Active Substance: HYALURONATE SODIUM
  23. CEFTRIAXONE [Concomitant]
     Active Substance: CEFTRIAXONE
  24. FUROSEMIDE [Concomitant]
     Active Substance: FUROSEMIDE
  25. HYDROCORTISONE SODIUM SUCCINATE [Concomitant]
     Active Substance: HYDROCORTISONE SODIUM SUCCINATE
  26. DILTIAZEM HYDROCHLORIDE [Concomitant]
     Active Substance: DILTIAZEM HYDROCHLORIDE

REACTIONS (5)
  - Malignant neoplasm progression [Fatal]
  - Lymphoma [Fatal]
  - Dermatitis exfoliative [Fatal]
  - Pyrexia [Fatal]
  - Chills [Fatal]
